FAERS Safety Report 15214405 (Version 4)
Quarter: 2018Q4

REPORT INFORMATION
  Report Type: Spontaneous
  Country: FR (occurrence: FR)
  Receive Date: 20180730
  Receipt Date: 20181031
  Transmission Date: 20190204
  Serious: Yes (Other)
  Sender: FDA-Public Use
  Company Number: FR-TEVA-2018-FR-927816

PATIENT
  Age: 39 Year
  Sex: Female
  Weight: 48 kg

DRUGS (6)
  1. COPAXONE [Suspect]
     Active Substance: GLATIRAMER ACETATE
     Indication: MULTIPLE SCLEROSIS
     Route: 058
     Dates: start: 20180626, end: 20181001
  2. XATRAL (ALFUZOSIN HYDROCHLORIDE) [Concomitant]
     Indication: URINARY TRACT DISORDER
     Dosage: IN THE EVENING
     Route: 048
     Dates: start: 201801
  3. GABAPENTIN. [Concomitant]
     Active Substance: GABAPENTIN
     Indication: PAIN
     Dosage: IN THE EVENING
     Route: 048
     Dates: start: 201801
  4. MEDROL (METHYLPREDNISOLONE) [Concomitant]
     Dosage: 100 MG
  5. DOLIPRANE [Concomitant]
     Active Substance: ACETAMINOPHEN
     Indication: PAIN
     Route: 048
  6. IBUPROFEN. [Concomitant]
     Active Substance: IBUPROFEN
     Indication: PAIN
     Route: 048

REACTIONS (5)
  - Muscular weakness [Unknown]
  - Leukopenia [Unknown]
  - Paraesthesia [Unknown]
  - Multiple sclerosis relapse [Unknown]
  - Lymphopenia [Unknown]

NARRATIVE: CASE EVENT DATE: 201807
